FAERS Safety Report 4959688-9 (Version None)
Quarter: 2006Q1

REPORT INFORMATION
  Report Type: 
  Country: None (occurrence: None)
  Receive Date: 20060331
  Receipt Date: 20060329
  Transmission Date: 20060701
  Serious: Yes (Death, Hospitalization)
  Sender: FDA-Public Use
  Company Number: US-BRISTOL-MYERS SQUIBB COMPANY-13330824

PATIENT
  Age: 71 Year
  Sex: Male

DRUGS (21)
  1. ETOPOSIDE [Suspect]
     Indication: SMALL CELL LUNG CANCER STAGE UNSPECIFIED
     Dates: start: 20051021, end: 20060126
  2. CISPLATIN [Suspect]
     Indication: SMALL CELL LUNG CANCER STAGE UNSPECIFIED
     Dates: start: 20051021, end: 20060126
  3. IRINOTECAN [Suspect]
     Indication: SMALL CELL LUNG CANCER STAGE UNSPECIFIED
     Dates: start: 20051021, end: 20060126
  4. MULTIVITAMIN [Concomitant]
     Dates: start: 20030101
  5. ASCORBIC ACID [Concomitant]
     Dates: start: 20030101
  6. VITAMIN B-12 [Concomitant]
     Route: 060
     Dates: start: 20040101
  7. PRIMATENE [Concomitant]
     Dates: start: 20050911
  8. ALEVE [Concomitant]
     Indication: HYPERSENSITIVITY
  9. EXCEDRIN [Concomitant]
  10. DECADRON SRC [Concomitant]
     Indication: NAUSEA
     Dates: start: 20051022
  11. ZOFRAN [Concomitant]
     Indication: NAUSEA
     Dates: start: 20051022
  12. NEUPOGEN [Concomitant]
     Dates: start: 20051022
  13. MAGNESIUM [Concomitant]
     Indication: HYPOMAGNESAEMIA
     Dates: start: 20051104
  14. IMODIUM [Concomitant]
     Indication: DIARRHOEA
     Dates: start: 20051102, end: 20051110
  15. AVAPRO [Concomitant]
     Indication: HYPERTENSION
     Dates: start: 20051024, end: 20051124
  16. ALBUTEROL [Concomitant]
     Dates: start: 20051024
  17. CLONIDINE [Concomitant]
     Indication: HYPERTENSION
     Dates: start: 20051021, end: 20051021
  18. NIFEDIPINE [Concomitant]
     Route: 060
     Dates: start: 20051021, end: 20051021
  19. MAGNESIUM SULFATE [Concomitant]
     Indication: HYPOMAGNESAEMIA
     Dates: start: 20051111
  20. PROCRIT [Concomitant]
     Indication: ANAEMIA
     Dates: start: 20051202, end: 20060126
  21. ROCEPHIN [Concomitant]
     Indication: PYREXIA
     Dates: start: 20051219, end: 20060126

REACTIONS (3)
  - ANAEMIA [None]
  - DYSPNOEA [None]
  - FEBRILE NEUTROPENIA [None]
